FAERS Safety Report 19436376 (Version 1)
Quarter: 2021Q2

REPORT INFORMATION
  Report Type: Spontaneous
  Country: CA (occurrence: CA)
  Receive Date: 20210618
  Receipt Date: 20210618
  Transmission Date: 20210717
  Serious: Yes (Hospitalization, Other)
  Sender: FDA-Public Use
  Company Number: CA-ACCORD-227887

PATIENT
  Age: 49 Year
  Sex: Female

DRUGS (15)
  1. GEMCITABINE/GEMCITABINE HYDROCHLORIDE [Suspect]
     Active Substance: GEMCITABINE\GEMCITABINE HYDROCHLORIDE
     Indication: PANCREATIC CARCINOMA METASTATIC
     Dosage: NOT SPECIFIED
     Route: 041
  2. HYDROXYQUINOLINE [Concomitant]
     Active Substance: OXYQUINOLINE
     Indication: RASH
  3. MACROGOL/MACROGOL STEARATE [Concomitant]
     Active Substance: POLYETHYLENE GLYCOLS
     Indication: CONSTIPATION
  4. BENZOYL PEROXIDE. [Concomitant]
     Active Substance: BENZOYL PEROXIDE
     Indication: RASH
  5. HYDROMORPHONE/HYDROMORPHONE HYDROCHLORIDE [Concomitant]
     Active Substance: HYDROMORPHONE
     Indication: BACK PAIN
     Dosage: NOT SPECIFIED
  6. STEMETIL [Concomitant]
     Active Substance: PROCHLORPERAZINE
     Indication: VOMITING
     Dosage: NOT SPECIFIED
  7. ABRAXANE [Suspect]
     Active Substance: PACLITAXEL
     Indication: PANCREATIC CARCINOMA METASTATIC
     Dosage: POWDER FOR SUSPENSION INTRAVENOUS
     Route: 041
  8. GRAVOL [Concomitant]
     Active Substance: DIMENHYDRINATE
     Indication: ABDOMINAL PAIN
     Dosage: NOT SPECIFIED
  9. ONDANSETRON [Concomitant]
     Active Substance: ONDANSETRON
     Indication: PROPHYLAXIS OF NAUSEA AND VOMITING
     Dosage: NOT SPECIFIED
  10. TREMELIMUMAB. [Suspect]
     Active Substance: TREMELIMUMAB
     Indication: PANCREATIC CARCINOMA METASTATIC
     Route: 041
  11. DURVALUMAB. [Suspect]
     Active Substance: DURVALUMAB
     Indication: PANCREATIC CARCINOMA METASTATIC
     Route: 042
  12. HYDROCORTISONE. [Concomitant]
     Active Substance: HYDROCORTISONE
     Indication: RASH
     Dosage: NOT SPECIFIED
     Route: 065
  13. BENADRYL [Concomitant]
     Active Substance: DIPHENHYDRAMINE HYDROCHLORIDE
     Indication: RASH
     Dosage: NOT SPECIFIED
     Route: 048
  14. CAMPHOR [Concomitant]
     Active Substance: CAMPHOR
     Indication: RASH
     Dosage: NOT SPECIFIED
     Route: 065
  15. DILAUDID [Concomitant]
     Active Substance: HYDROMORPHONE HYDROCHLORIDE
     Indication: PAIN
     Dosage: NOT SPECIFIED

REACTIONS (4)
  - Vomiting [Recovered/Resolved]
  - Small intestinal perforation [Recovered/Resolved]
  - Large intestinal obstruction [Recovered/Resolved]
  - Nausea [Recovered/Resolved]
